FAERS Safety Report 20849599 (Version 1)
Quarter: 2022Q2

REPORT INFORMATION
  Report Type: Spontaneous
  Country: US (occurrence: None)
  Receive Date: 20220518
  Receipt Date: 20220518
  Transmission Date: 20220720
  Serious: Yes (Death)
  Sender: FDA-Public Use
  Company Number: None

PATIENT
  Age: 60 Year
  Sex: Male
  Weight: 71.21 kg

DRUGS (34)
  1. EVUSHELD [Suspect]
     Active Substance: CILGAVIMAB\TIXAGEVIMAB
  2. Tacrolimus/Prograf [Concomitant]
  3. PREDNISONE [Concomitant]
     Active Substance: PREDNISONE
  4. URSODIOL [Concomitant]
     Active Substance: URSODIOL
  5. ACYCLOVIR [Concomitant]
     Active Substance: ACYCLOVIR
  6. AZITHROMYCIN [Concomitant]
     Active Substance: AZITHROMYCIN
  7. DEXILANT [Concomitant]
     Active Substance: DEXLANSOPRAZOLE
  8. OMEPRAZOLE [Concomitant]
     Active Substance: OMEPRAZOLE
  9. PRAVASTATIN [Concomitant]
     Active Substance: PRAVASTATIN
  10. SPIRONOLACTONE [Concomitant]
     Active Substance: SPIRONOLACTONE
  11. CREON [Concomitant]
     Active Substance: PANCRELIPASE AMYLASE\PANCRELIPASE LIPASE\PANCRELIPASE PROTEASE
  12. ATOVAQUONE [Concomitant]
     Active Substance: ATOVAQUONE
  13. OLANZAPINE [Concomitant]
     Active Substance: OLANZAPINE
  14. POTASSIUM [Concomitant]
     Active Substance: POTASSIUM
  15. POTASSIUM CITRATE [Concomitant]
     Active Substance: POTASSIUM CITRATE
  16. ELIQUIS [Concomitant]
     Active Substance: APIXABAN
  17. LASIX [Concomitant]
     Active Substance: FUROSEMIDE
  18. Multivitamin D5000 with A,B,D,E,K + Zinc [Concomitant]
  19. CREON [Concomitant]
     Active Substance: PANCRELIPASE AMYLASE\PANCRELIPASE LIPASE\PANCRELIPASE PROTEASE
  20. COPPER GLUCONATE [Concomitant]
     Active Substance: COPPER GLUCONATE
  21. IRON [Concomitant]
     Active Substance: IRON
  22. IRON [Concomitant]
     Active Substance: IRON
  23. B-6 [Concomitant]
  24. VITAMIN D3 [Concomitant]
     Active Substance: CHOLECALCIFEROL
  25. Novalog/Humalog [Concomitant]
  26. LEVEMIR [Concomitant]
     Active Substance: INSULIN DETEMIR
  27. Neupogen/Nivestyn [Concomitant]
  28. CAYSTON [Concomitant]
     Active Substance: AZTREONAM
  29. Colistan [Concomitant]
  30. REGLAN [Concomitant]
     Active Substance: METOCLOPRAMIDE HYDROCHLORIDE
  31. Diphenox-Atrop [Concomitant]
  32. LEVITRA [Concomitant]
     Active Substance: VARDENAFIL HYDROCHLORIDE
  33. LUNESTA [Concomitant]
     Active Substance: ESZOPICLONE
  34. J + J Baby Shampoo/Salt Packet/Mupirocin 2% [Concomitant]

REACTIONS (3)
  - Dyspnoea [None]
  - Infection [None]
  - Cerebellar stroke [None]

NARRATIVE: CASE EVENT DATE: 20220204
